FAERS Safety Report 8555558-8 (Version None)
Quarter: 2012Q3

REPORT INFORMATION
  Report Type: 
  Country: None (occurrence: None)
  Receive Date: 20120731
  Receipt Date: 20120308
  Transmission Date: 20120928
  Serious: No
  Sender: FDA-Public Use
  Company Number: US-ASTRAZENECA-2010SE17260

PATIENT
  Age: 61 Year
  Sex: Female
  Weight: 81.6 kg

DRUGS (13)
  1. SEROQUEL [Suspect]
     Indication: MAJOR DEPRESSION
     Route: 048
  2. LEVOTHYROIDINE [Concomitant]
  3. SEROQUEL [Suspect]
     Route: 048
  4. SEROQUEL [Suspect]
     Route: 048
     Dates: start: 20080101
  5. CELEXA [Concomitant]
     Indication: DEPRESSION
  6. FAMOTIDINE [Concomitant]
  7. SEROQUEL [Suspect]
     Route: 048
     Dates: start: 20080101
  8. SEROQUEL [Suspect]
     Indication: DEPRESSION
     Route: 048
  9. TRAZODONE HCL [Concomitant]
     Indication: DEPRESSION
  10. SEROQUEL [Suspect]
     Route: 048
  11. KLONOPIN [Concomitant]
     Indication: DEPRESSION
  12. LEXAPRO [Concomitant]
  13. PRISTIQ [Concomitant]

REACTIONS (6)
  - DEPRESSION [None]
  - BARRETT'S OESOPHAGUS [None]
  - BLOOD ALCOHOL INCREASED [None]
  - WEIGHT INCREASED [None]
  - ADVERSE EVENT [None]
  - ANTISOCIAL BEHAVIOUR [None]
